FAERS Safety Report 20865653 (Version 5)
Quarter: 2024Q3

REPORT INFORMATION
  Report Type: Report from Study
  Country: NL (occurrence: NL)
  Receive Date: 20220524
  Receipt Date: 20240724
  Transmission Date: 20241017
  Serious: Yes (Hospitalization, Other)
  Sender: VERITY PHARMACEUTICALS
  Company Number: NL-VER-202200051

PATIENT
  Age: 71 Year
  Sex: Male

DRUGS (7)
  1. TRIPTORELIN PAMOATE [Suspect]
     Active Substance: TRIPTORELIN PAMOATE
     Indication: Prostate cancer
     Dosage: (11.25 MILLIGRAM(S), IN 3 MONTH)
     Route: 030
     Dates: start: 20220208, end: 20220208
  2. TRIPTORELIN PAMOATE [Suspect]
     Active Substance: TRIPTORELIN PAMOATE
     Indication: Prostate cancer
     Dosage: (11.25 MILLIGRAM(S), IN 3 MONTH)
     Route: 030
     Dates: start: 20220505, end: 20220505
  3. TRIPTORELIN PAMOATE [Suspect]
     Active Substance: TRIPTORELIN PAMOATE
     Indication: Prostate cancer
     Dosage: (11.25 MILLIGRAM(S), IN 3 MONTH)
     Route: 030
     Dates: start: 20240403, end: 20240403
  4. TRIPTORELIN PAMOATE [Suspect]
     Active Substance: TRIPTORELIN PAMOATE
     Indication: Prostate cancer
     Dosage: (11.25 MILLIGRAM(S), IN 3 MONTH)
     Route: 030
     Dates: start: 20240702, end: 20240702
  5. TRIPTORELIN PAMOATE [Suspect]
     Active Substance: TRIPTORELIN PAMOATE
     Indication: Prostate cancer
     Dosage: (11.25 MILLIGRAM(S), IN 3 MONTH)
     Route: 030
     Dates: start: 20220726, end: 20220726
  6. TRIPTORELIN PAMOATE [Suspect]
     Active Substance: TRIPTORELIN PAMOATE
     Indication: Prostate cancer
     Dosage: (11.25 MILLIGRAM(S), IN 3 MONTH)
     Route: 030
     Dates: start: 20230110, end: 20230110
  7. TRIPTORELIN PAMOATE [Suspect]
     Active Substance: TRIPTORELIN PAMOATE
     Indication: Prostate cancer
     Dosage: OTHER BATCH/ LOT NUMBER WERE 04500, 04555 AND U19683 ALONG WITH EXPIRATION DATE DEC-2025, APR-2026 A
     Route: 030
     Dates: start: 20210309, end: 20210309

REACTIONS (7)
  - Arrhythmia [Recovering/Resolving]
  - Malaise [Recovering/Resolving]
  - Hip fracture [Recovered/Resolved with Sequelae]
  - Arthritis infective [Recovered/Resolved]
  - Cardiac arrest [Unknown]
  - Pneumonia [Recovering/Resolving]
  - Cardiac disorder [Recovering/Resolving]

NARRATIVE: CASE EVENT DATE: 20240621
